FAERS Safety Report 17562356 (Version 1)
Quarter: 2020Q1

REPORT INFORMATION
  Report Type: Spontaneous
  Country: US (occurrence: US)
  Receive Date: 20200319
  Receipt Date: 20200319
  Transmission Date: 20200409
  Serious: No
  Sender: FDA-Public Use
  Company Number: US-KALA PHARAMACEUTICALS-2019KLA00065

PATIENT
  Age: 66 Year
  Sex: Female

DRUGS (3)
  1. BROMSITE [Suspect]
     Active Substance: BROMFENAC SODIUM
  2. MOXIFLOXACIN. [Suspect]
     Active Substance: MOXIFLOXACIN
  3. INVELTYS [Suspect]
     Active Substance: LOTEPREDNOL ETABONATE
     Indication: EYE INFLAMMATION
     Dosage: 2 DROPS, 1X/DAY FOR 2 WEEKS TO EACH EYE
     Route: 047
     Dates: start: 20191121, end: 20191204

REACTIONS (4)
  - Unevaluable event [Not Recovered/Not Resolved]
  - Inappropriate schedule of product administration [Recovered/Resolved]
  - Madarosis [Not Recovered/Not Resolved]
  - Nasopharyngitis [Not Recovered/Not Resolved]

NARRATIVE: CASE EVENT DATE: 201911
